FAERS Safety Report 19477902 (Version 1)
Quarter: 2021Q2

REPORT INFORMATION
  Report Type: Other
  Country: US (occurrence: US)
  Receive Date: 20210630
  Receipt Date: 20210630
  Transmission Date: 20210717
  Serious: No
  Sender: FDA-Public Use
  Company Number: US-NEUROCRINE BIOSCIENCES INC.-2021NBI03126

PATIENT

DRUGS (5)
  1. BUPROPION. [Suspect]
     Active Substance: BUPROPION
     Dosage: 100 MILLIGRAM, BID
     Route: 048
     Dates: start: 202105
  2. LORAZEPAM. [Concomitant]
     Active Substance: LORAZEPAM
     Dosage: UNK
     Route: 048
  3. INGREZZA [Suspect]
     Active Substance: VALBENAZINE
     Indication: TARDIVE DYSKINESIA
     Dosage: 40 MILLIGRAM, QD
     Route: 048
     Dates: start: 202009
  4. CLOMIPRAMINE [Concomitant]
     Active Substance: CLOMIPRAMINE
     Dosage: UNK
  5. BUPROPION. [Suspect]
     Active Substance: BUPROPION
     Indication: PRODUCT USED FOR UNKNOWN INDICATION
     Dosage: 100 MILLIGRAM, TID
     Route: 048
     Dates: end: 202105

REACTIONS (4)
  - Tardive dyskinesia [Unknown]
  - Drug interaction [Unknown]
  - Feeling jittery [Unknown]
  - Poor quality sleep [Unknown]

NARRATIVE: CASE EVENT DATE: 202105
